FAERS Safety Report 10556860 (Version 1)
Quarter: 2014Q4

REPORT INFORMATION
  Report Type: Spontaneous
  Country: US (occurrence: None)
  Receive Date: 20141029
  Receipt Date: 20141029
  Transmission Date: 20150529
  Serious: Yes (Other)
  Sender: FDA-Public Use
  Company Number: IMP_07976_2014

PATIENT
  Age: 64 Year
  Sex: Male

DRUGS (4)
  1. DOXYCYCLINE. [Suspect]
     Active Substance: DOXYCYCLINE
     Indication: MALARIA PROPHYLAXIS
     Dosage: (DF)
  2. HYDROCHLOROTHIAZIDE. [Suspect]
     Active Substance: HYDROCHLOROTHIAZIDE
     Indication: HYPERTENSION
     Dosage: (DF)
  3. MELOXICAM. [Suspect]
     Active Substance: MELOXICAM
     Indication: OSTEOARTHRITIS
     Dosage: (DF)
  4. LISINOPRIL. [Suspect]
     Active Substance: LISINOPRIL
     Indication: HYPERTENSION
     Dosage: (DF)

REACTIONS (5)
  - Drug reaction with eosinophilia and systemic symptoms [None]
  - Eyelid margin crusting [None]
  - Dyspnoea [None]
  - Acute kidney injury [None]
  - Mouth ulceration [None]
